FAERS Safety Report 13873239 (Version 5)
Quarter: 2017Q4

REPORT INFORMATION
  Report Type: Spontaneous
  Country: US (occurrence: US)
  Receive Date: 20170816
  Receipt Date: 20171106
  Transmission Date: 20180320
  Serious: No
  Sender: FDA-Public Use
  Company Number: PHEH2017US025344

PATIENT
  Age: 86 Year
  Sex: Female
  Weight: 63.5 kg

DRUGS (1)
  1. ILEVRO [Suspect]
     Active Substance: NEPAFENAC
     Indication: PRODUCT USED FOR UNKNOWN INDICATION
     Dosage: 1 GTT, QD (QAM )EVERY DAY BEFORE NOON
     Route: 047
     Dates: start: 20170526, end: 20170727

REACTIONS (2)
  - Drug administration error [Unknown]
  - Product container issue [Unknown]

NARRATIVE: CASE EVENT DATE: 20170526
